FAERS Safety Report 18715423 (Version 4)
Quarter: 2021Q1

REPORT INFORMATION
  Report Type: Report from Study
  Country: None (occurrence: CO)
  Receive Date: 20210108
  Receipt Date: 20210326
  Transmission Date: 20210419
  Serious: Yes (Other)
  Sender: FDA-Public Use
  Company Number: CO-ABBVIE-21K-036-3719916-00

PATIENT
  Age: 64 Year
  Sex: Female
  Weight: 68 kg

DRUGS (1)
  1. HUMIRA [Suspect]
     Active Substance: ADALIMUMAB
     Indication: RHEUMATOID ARTHRITIS
     Route: 058
     Dates: start: 20190828

REACTIONS (23)
  - Gait disturbance [Recovering/Resolving]
  - Limb discomfort [Recovering/Resolving]
  - Poor quality sleep [Recovering/Resolving]
  - Hypersensitivity [Recovering/Resolving]
  - Skin disorder [Recovering/Resolving]
  - Pruritus [Recovering/Resolving]
  - Inflammation [Not Recovered/Not Resolved]
  - Pruritus [Recovering/Resolving]
  - Swelling face [Unknown]
  - Skin mass [Recovering/Resolving]
  - Stress at work [Recovering/Resolving]
  - Hypersensitivity [Recovering/Resolving]
  - Pain in extremity [Unknown]
  - Pain in extremity [Recovering/Resolving]
  - Pruritus [Recovering/Resolving]
  - Ingrowing nail [Unknown]
  - Arthralgia [Unknown]
  - Depression [Recovering/Resolving]
  - Acne [Recovering/Resolving]
  - Dry skin [Recovering/Resolving]
  - Pruritus [Recovering/Resolving]
  - Arthritis [Recovering/Resolving]
  - Musculoskeletal pain [Recovering/Resolving]

NARRATIVE: CASE EVENT DATE: 2020
